FAERS Safety Report 17640293 (Version 1)
Quarter: 2020Q2

REPORT INFORMATION
  Report Type: Spontaneous
  Country: AE (occurrence: AE)
  Receive Date: 20200408
  Receipt Date: 20200408
  Transmission Date: 20200713
  Serious: Yes (Death, Hospitalization, Other)
  Sender: FDA-Public Use
  Company Number: AE-AMGEN-ARESP2020054043

PATIENT

DRUGS (3)
  1. IRON [Concomitant]
     Active Substance: IRON
  2. CINACALCET HCL [Suspect]
     Active Substance: CINACALCET HYDROCHLORIDE
     Indication: PRODUCT USED FOR UNKNOWN INDICATION
     Dosage: UNK
     Route: 065
  3. PHOSPHATES [SODIUM PHOSPHATE] [Concomitant]
     Active Substance: SODIUM PHOSPHATE

REACTIONS (3)
  - Death [Fatal]
  - Hospitalisation [Unknown]
  - Device related sepsis [Unknown]
